FAERS Safety Report 5115532-0 (Version None)
Quarter: 2006Q3

REPORT INFORMATION
  Report Type: 
  Country: None (occurrence: None)
  Receive Date: 20060927
  Receipt Date: 20060829
  Transmission Date: 20061208
  Serious: Yes (Hospitalization)
  Sender: FDA-Public Use
  Company Number: CA-NOVOPROD-256566

PATIENT
  Age: 68 Year
  Sex: Female

DRUGS (2)
  1. NOVOLIN GE 30/70 PENFILL [Suspect]
     Indication: INSULIN-REQUIRING TYPE II DIABETES MELLITUS
  2. NOVOLIN GE 30/70 PENFILL [Suspect]
     Route: 058

REACTIONS (5)
  - DRUG HYPERSENSITIVITY [None]
  - HYPOGLYCAEMIA [None]
  - PRURITUS GENERALISED [None]
  - PSORIASIS [None]
  - SKIN EXFOLIATION [None]
